FAERS Safety Report 5951813-6 (Version None)
Quarter: 2008Q4

REPORT INFORMATION
  Report Type: 
  Country: None (occurrence: None)
  Receive Date: 20081113
  Receipt Date: 20081111
  Transmission Date: 20090506
  Serious: Yes (Hospitalization)
  Sender: FDA-Public Use
  Company Number: A0755816A

PATIENT
  Age: 17 Year
  Sex: Female

DRUGS (1)
  1. VALTREX [Suspect]
     Dosage: 2G PER DAY
     Route: 048
     Dates: start: 20080701, end: 20080801

REACTIONS (5)
  - BLINDNESS UNILATERAL [None]
  - BONE PAIN [None]
  - HEADACHE [None]
  - NECK PAIN [None]
  - URINARY INCONTINENCE [None]
